FAERS Safety Report 7646921-8 (Version None)
Quarter: 2011Q3

REPORT INFORMATION
  Report Type: 
  Country: None (occurrence: None)
  Receive Date: 20110801
  Receipt Date: 20110720
  Transmission Date: 20111222
  Serious: Yes (Life-Threatening, Hospitalization)
  Sender: FDA-Public Use
  Company Number: DE-SANOFI-AVENTIS-2011SA031882

PATIENT
  Age: 58 Year
  Sex: Male
  Weight: 84 kg

DRUGS (4)
  1. CAPECITABINE [Suspect]
     Indication: RECTAL CANCER
     Route: 048
     Dates: start: 20110207, end: 20110307
  2. THERAPEUTIC RADIOPHARMACEUTICALS [Suspect]
     Indication: RECTAL CANCER
     Dosage: 1.8 GY PER FRACTION
     Dates: start: 20110207, end: 20110316
  3. OXALIPLATIN [Suspect]
     Indication: RECTAL CANCER
     Route: 042
     Dates: start: 20110207, end: 20110207
  4. OXALIPLATIN [Suspect]
     Route: 042
     Dates: start: 20110307, end: 20110307

REACTIONS (2)
  - FAILURE TO ANASTOMOSE [None]
  - ANAL ABSCESS [None]
